FAERS Safety Report 11107768 (Version 1)
Quarter: 2015Q2

REPORT INFORMATION
  Report Type: Report from Study
  Country: IT (occurrence: IT)
  Receive Date: 20150512
  Receipt Date: 20150512
  Transmission Date: 20150821
  Serious: Yes (Hospitalization, Other)
  Sender: FDA-Public Use
  Company Number: IT-ABBVIE-15P-083-1388451-00

PATIENT
  Age: 64 Year
  Sex: Female
  Weight: 50 kg

DRUGS (1)
  1. DUODOPA [Suspect]
     Active Substance: CARBIDOPA\LEVODOPA
     Indication: PARKINSON^S DISEASE
     Dosage: MD 9(+3), CR 4.6, ED 2
     Route: 050
     Dates: start: 20150331

REACTIONS (2)
  - Gastric cancer [Unknown]
  - Gastric ulcer [Unknown]

NARRATIVE: CASE EVENT DATE: 20150506
